FAERS Safety Report 21667003 (Version 1)
Quarter: 2022Q4

REPORT INFORMATION
  Report Type: Spontaneous
  Country: DE (occurrence: DE)
  Receive Date: 20221201
  Receipt Date: 20221201
  Transmission Date: 20230113
  Serious: Yes (Hospitalization)
  Sender: FDA-Public Use
  Company Number: None

PATIENT
  Age: 77 Year
  Sex: Female
  Weight: 67 kg

DRUGS (13)
  1. FLUOROURACIL [Suspect]
     Active Substance: FLUOROURACIL
     Indication: Product used for unknown indication
     Dosage: 1000 MG/M2/24H, ACCORDING TO PLAN, AMPOULES
  2. MITOMYCIN [Suspect]
     Active Substance: MITOMYCIN
     Indication: Product used for unknown indication
     Dosage: 12 MG/M2, ACCORDING TO PLAN, AMPOULES
  3. BISOPROLOL [Concomitant]
     Active Substance: BISOPROLOL
     Dosage: 2.5 MG, 1-0-1-0, TABLET
  4. CALCIUM CHLORIDE, SODIUM PHOSPHATE [Concomitant]
     Dosage: 1-1-1-0
  5. ENOXAPARIN [Concomitant]
     Active Substance: ENOXAPARIN
     Dosage: 40MG/0.4ML, 0-0-1-0, PRE-FILLED SYRINGES
  6. LORAZEPAM [Concomitant]
     Active Substance: LORAZEPAM
     Dosage: 1 MG, AS REQUIRED, ORODISPERSIBLE TABLETS
  7. LACTULOSE [Concomitant]
     Active Substance: LACTULOSE
     Dosage: 3.335G/5ML, AS REQUIRED, SYRUP
  8. METAMIZOLE [Concomitant]
     Active Substance: METAMIZOLE
     Dosage: 500 MG, 2-2-2-2, TABLET
  9. METOCLOPRAMIDE [Concomitant]
     Active Substance: METOCLOPRAMIDE
     Dosage: 10 MG, 1-1-1-0, TABLET
  10. ONDANSETRON [Concomitant]
     Active Substance: ONDANSETRON
     Dosage: 8 MG, AS REQUIRED, ORODISPERSIBLE TABLETS
  11. PANTOPRAZOLE [Concomitant]
     Active Substance: PANTOPRAZOLE
     Dosage: 40 MG, 0-0-1-0, TABLET
  12. RAMIPRIL [Concomitant]
     Active Substance: RAMIPRIL
     Dosage: 5 MG, 1-0-1-0, TABLET
  13. SODIUM PICOSULFATE [Concomitant]
     Active Substance: SODIUM PICOSULFATE
     Dosage: 7.5 MG/ML, AS REQUIRED, DROPS

REACTIONS (4)
  - Nausea [Unknown]
  - Anal injury [Unknown]
  - Wound complication [Unknown]
  - Leukopenia [Unknown]
